FAERS Safety Report 16980284 (Version 8)
Quarter: 2020Q1

REPORT INFORMATION
  Report Type: Report from Study
  Country: DE (occurrence: DE)
  Receive Date: 20191031
  Receipt Date: 20200113
  Transmission Date: 20200409
  Serious: Yes (Hospitalization, Other)
  Sender: FDA-Public Use
  Company Number: PHHY2019DE108508

PATIENT
  Sex: Female
  Weight: 80 kg

DRUGS (6)
  1. KISQALI [Suspect]
     Active Substance: RIBOCICLIB
     Indication: BREAST CANCER METASTATIC
     Dosage: 600 MG (21 DAYS INTAKE, 7 DAYS PAUSE), QD
     Route: 048
     Dates: start: 20190412, end: 20190509
  2. PREDNISOLONE. [Suspect]
     Active Substance: PREDNISOLONE
     Indication: RADIATION PNEUMONITIS
     Dosage: 30 MG, DAILY
     Route: 065
     Dates: start: 20190615
  3. PREDNISOLONE. [Suspect]
     Active Substance: PREDNISOLONE
     Dosage: 40 MG, UNK
     Route: 065
     Dates: start: 20190628
  4. GRANOCYTE [Concomitant]
     Active Substance: LENOGRASTIM
     Indication: LEUKOPENIA
     Dosage: 34 MILLION IU INTERMITTENT, UNK
     Route: 065
     Dates: start: 20190118, end: 20190227
  5. KISQALI [Suspect]
     Active Substance: RIBOCICLIB
     Dosage: 400 MG (21 DAYS INTAKE, 7 DAYS PAUSE), QD
     Route: 048
     Dates: start: 20190516, end: 20190930
  6. LETROZOLE. [Suspect]
     Active Substance: LETROZOLE
     Indication: BREAST CANCER METASTATIC
     Dosage: 2.5 MG, QD
     Route: 048
     Dates: start: 20190412

REACTIONS (12)
  - Wound infection [Recovered/Resolved]
  - Leukopenia [Recovered/Resolved]
  - Musculoskeletal pain [Recovered/Resolved]
  - Cough [Recovered/Resolved]
  - Alopecia [Not Recovered/Not Resolved]
  - Oedema peripheral [Recovered/Resolved]
  - Oedema [Recovered/Resolved]
  - Neutropenia [Recovered/Resolved]
  - Radiation pneumonitis [Recovered/Resolved]
  - Postoperative wound infection [Recovered/Resolved]
  - Protein deficiency [Unknown]
  - Concomitant disease aggravated [Recovered/Resolved]

NARRATIVE: CASE EVENT DATE: 20190501
